FAERS Safety Report 11683090 (Version 2)
Quarter: 2015Q4

REPORT INFORMATION
  Report Type: Spontaneous
  Country: US (occurrence: None)
  Receive Date: 20151029
  Receipt Date: 20151104
  Transmission Date: 20160304
  Serious: Yes (Hospitalization, Other)
  Sender: FDA-Public Use
  Company Number: US-MDT-ADR-2015-02044

PATIENT
  Age: 66 Year
  Sex: Female

DRUGS (2)
  1. COMPOUNDED CLONIDINE (INTRATHECAL) 800MCG/ML [Suspect]
     Active Substance: CLONIDINE
     Dosage: 130MCG/DAY
  2. COMPOUNDED BACLOFEN INTRATHECAL 1,500MCG/ML [Suspect]
     Active Substance: BACLOFEN
     Indication: MUSCLE SPASTICITY
     Dosage: 245MCG/DAY

REACTIONS (1)
  - Cerebrovascular accident [None]
